FAERS Safety Report 19278082 (Version 1)
Quarter: 2021Q2

REPORT INFORMATION
  Report Type: Report from Study
  Country: None (occurrence: US)
  Receive Date: 20210520
  Receipt Date: 20210520
  Transmission Date: 20210717
  Serious: Yes (Other)
  Sender: FDA-Public Use
  Company Number: US-ABBVIE-21K-163-3866162-00

PATIENT
  Age: 70 Year
  Sex: Female

DRUGS (7)
  1. HUMIRA [Suspect]
     Active Substance: ADALIMUMAB
     Indication: CROHN^S DISEASE
     Route: 058
     Dates: start: 201606
  2. COVID?19 VACCINE NOS. [Concomitant]
     Active Substance: COVID-19 VACCINE NOS
     Indication: COVID-19 IMMUNISATION
     Dosage: PFIZER
     Route: 030
     Dates: start: 20210110, end: 20210110
  3. COVID?19 VACCINE NOS. [Concomitant]
     Active Substance: COVID-19 VACCINE NOS
     Dosage: PFIZER
     Route: 030
     Dates: start: 20210131, end: 20210131
  4. COLESTIPOL [Concomitant]
     Active Substance: COLESTIPOL
     Indication: OFF LABEL USE
  5. AZATHIOPRINE. [Concomitant]
     Active Substance: AZATHIOPRINE
     Indication: PRODUCT USED FOR UNKNOWN INDICATION
  6. COLESTIPOL [Concomitant]
     Active Substance: COLESTIPOL
     Indication: BILE ACID MALABSORPTION
  7. CALCIUM [Concomitant]
     Active Substance: CALCIUM
     Indication: PRODUCT USED FOR UNKNOWN INDICATION

REACTIONS (13)
  - SARS-CoV-2 test positive [Recovered/Resolved]
  - Fatigue [Recovered/Resolved]
  - Arthritis [Recovering/Resolving]
  - Sjogren^s syndrome [Not Recovered/Not Resolved]
  - Discomfort [Recovering/Resolving]
  - Mobility decreased [Recovering/Resolving]
  - Pyrexia [Recovered/Resolved]
  - Chronic kidney disease [Not Recovered/Not Resolved]
  - Dental caries [Recovered/Resolved]
  - Inflammation [Recovering/Resolving]
  - Throat irritation [Recovered/Resolved]
  - Joint dislocation [Not Recovered/Not Resolved]
  - Hypertension [Not Recovered/Not Resolved]

NARRATIVE: CASE EVENT DATE: 2018
